FAERS Safety Report 14528173 (Version 2)
Quarter: 2018Q1

REPORT INFORMATION
  Report Type: Report from Study
  Country: BR (occurrence: BR)
  Receive Date: 20180214
  Receipt Date: 20180327
  Transmission Date: 20180509
  Serious: Yes (Hospitalization)
  Sender: FDA-Public Use
  Company Number: BR-UCBSA-2017045461

PATIENT
  Age: 19 Year
  Sex: Female
  Weight: 52 kg

DRUGS (6)
  1. VITAMIN D [Concomitant]
     Active Substance: CHOLECALCIFEROL
     Indication: STRESS
  2. CERTOLIZUMAB PEGOL [Suspect]
     Active Substance: CERTOLIZUMAB PEGOL
     Indication: CROHN^S DISEASE
     Dosage: 400 MG, EVERY2 WEEKS (LOADING DOSE) AND 400 MG, EVERY 4 WEEKS (MAINTENANCE DOSE)
     Dates: start: 20171020
  3. VITAMIN D [Concomitant]
     Active Substance: CHOLECALCIFEROL
     Indication: ANXIETY
     Dosage: 10 MG
     Route: 048
     Dates: start: 201711
  4. PREDNISONE. [Concomitant]
     Active Substance: PREDNISONE
     Indication: CROHN^S DISEASE
     Dosage: 40 MG, ONCE DAILY (QD)
     Route: 048
     Dates: start: 201710
  5. ESCITALOPRAM OXALATE. [Concomitant]
     Active Substance: ESCITALOPRAM OXALATE
     Indication: ANXIETY
     Dosage: UNK, ONCE DAILY (QD)
     Route: 048
     Dates: start: 201710
  6. ZANTAC [Concomitant]
     Active Substance: RANITIDINE HYDROCHLORIDE
     Indication: CROHN^S DISEASE
     Dosage: 50 MG, ONCE DAILY (QD)
     Route: 048
     Dates: start: 20150901

REACTIONS (6)
  - Pyrexia [Not Recovered/Not Resolved]
  - Cough [Not Recovered/Not Resolved]
  - Gastrointestinal inflammation [Recovered/Resolved]
  - Throat irritation [Not Recovered/Not Resolved]
  - Application site discolouration [Not Recovered/Not Resolved]
  - Abdominal pain [Not Recovered/Not Resolved]

NARRATIVE: CASE EVENT DATE: 20171031
